FAERS Safety Report 5603874-1 (Version None)
Quarter: 2008Q1

REPORT INFORMATION
  Report Type: 
  Country: None (occurrence: None)
  Receive Date: 20080125
  Receipt Date: 20080125
  Transmission Date: 20080703
  Serious: No
  Sender: FDA-Public Use
  Company Number: None

PATIENT
  Age: 57 Year
  Sex: Male

DRUGS (1)
  1. DIPHENHYDRAMINE HCL [Suspect]
     Dosage: IV
     Route: 042
     Dates: start: 20071106, end: 20071106

REACTIONS (2)
  - AGITATION [None]
  - DELIRIUM [None]
